FAERS Safety Report 4435807-8 (Version None)
Quarter: 2004Q3

REPORT INFORMATION
  Report Type: 
  Country: None (occurrence: None)
  Receive Date: 20040826
  Receipt Date: 20040811
  Transmission Date: 20050211
  Serious: Yes (Hospitalization)
  Sender: FDA-Public Use
  Company Number: 04P-163-0270440-00

PATIENT
  Age: 31 Year
  Sex: Female

DRUGS (1)
  1. VICODIN ES [Suspect]
     Indication: NECK PAIN
     Dosage: 7.5 MG, 5 IN 1 D, PER ORAL
     Route: 048
     Dates: start: 20000101

REACTIONS (4)
  - HAEMORRHAGE INTRACRANIAL [None]
  - MALFORMATION VENOUS [None]
  - PAIN EXACERBATED [None]
  - PNEUMOCEPHALUS [None]
